FAERS Safety Report 23842599 (Version 1)
Quarter: 2024Q2

REPORT INFORMATION
  Report Type: Spontaneous
  Country: NL (occurrence: None)
  Receive Date: 20240510
  Receipt Date: 20240510
  Transmission Date: 20240715
  Serious: Yes (Hospitalization)
  Sender: FDA-Public Use
  Company Number: 2024A105466

PATIENT
  Age: 32 Year
  Sex: Female

DRUGS (1)
  1. PULMICORT TURBUHALER [Suspect]
     Active Substance: BUDESONIDE
     Indication: Dyspnoea
     Route: 055
     Dates: start: 20000324, end: 20000328

REACTIONS (2)
  - Dyspnoea [Unknown]
  - Angioedema [Unknown]

NARRATIVE: CASE EVENT DATE: 20000324
